FAERS Safety Report 6500103-1 (Version None)
Quarter: 2009Q4

REPORT INFORMATION
  Report Type: 
  Country: None (occurrence: None)
  Receive Date: 20091216
  Receipt Date: 20091203
  Transmission Date: 20100525
  Serious: Yes (Hospitalization)
  Sender: FDA-Public Use
  Company Number: NL-MEDIMMUNE-MEDI-0009842

PATIENT
  Sex: Female
  Weight: 3.06 kg

DRUGS (2)
  1. SYNAGIS [Suspect]
     Route: 030
     Dates: start: 20091008, end: 20091105
  2. SYNAGIS [Suspect]
     Route: 030
     Dates: start: 20091203

REACTIONS (3)
  - APNOEA [None]
  - HYPOTONIA [None]
  - PALLOR [None]
